FAERS Safety Report 8405188-3 (Version None)
Quarter: 2012Q2

REPORT INFORMATION
  Report Type: 
  Country: None (occurrence: None)
  Receive Date: 20120603
  Receipt Date: 20120524
  Transmission Date: 20120825
  Serious: Yes (Other)
  Sender: FDA-Public Use
  Company Number: JP-VERTEX PHARMACEUTICALS INC.-AE-2012-004903

PATIENT
  Age: 59 Year
  Sex: Female

DRUGS (6)
  1. TELAVIC (TELAPREVIR) [Suspect]
     Indication: HEPATITIS C
     Route: 048
     Dates: start: 20120209
  2. RIBAVIRIN [Concomitant]
     Indication: HEPATITIS C
     Route: 048
     Dates: start: 20120209, end: 20120229
  3. URSO 250 [Concomitant]
     Route: 048
  4. OLOPATADINE HCL [Concomitant]
     Route: 048
     Dates: start: 20120209
  5. RIBAVIRIN [Concomitant]
     Route: 048
     Dates: start: 20120301
  6. PEGINTERFERON ALFA-2B [Concomitant]
     Indication: HEPATITIS C
     Route: 051
     Dates: start: 20120209

REACTIONS (1)
  - RASH [None]
